FAERS Safety Report 16687260 (Version 1)
Quarter: 2019Q3

REPORT INFORMATION
  Report Type: Spontaneous
  Country: US (occurrence: US)
  Receive Date: 20190809
  Receipt Date: 20190809
  Transmission Date: 20191004
  Serious: No
  Sender: FDA-Public Use
  Company Number: US-MYLANLABS-2019M1069903

PATIENT
  Sex: Female
  Weight: 75 kg

DRUGS (1)
  1. ESTRADIOL TRANSDERMAL SYSTEM [Suspect]
     Active Substance: ESTRADIOL
     Indication: HORMONE REPLACEMENT THERAPY
     Dosage: UNK
     Route: 062
     Dates: start: 201905

REACTIONS (6)
  - Application site irritation [Recovered/Resolved]
  - Rash [Recovered/Resolved]
  - Wrong technique in product usage process [Recovered/Resolved]
  - Application site erythema [Recovered/Resolved]
  - Application site odour [Recovered/Resolved]
  - Product adhesion issue [Recovered/Resolved]

NARRATIVE: CASE EVENT DATE: 201905
